FAERS Safety Report 12637049 (Version 1)
Quarter: 2016Q3

REPORT INFORMATION
  Report Type: Not Available
  Country: US (occurrence: US)
  Receive Date: 20160809
  Receipt Date: 20160809
  Transmission Date: 20161109
  Serious: Yes (Other)
  Sender: FDA-Public Use
  Company Number: US-BEH-2014042266

PATIENT
  Age: 64 Year
  Sex: Female
  Weight: 74 kg

DRUGS (14)
  1. PRIVIGEN [Suspect]
     Active Substance: HUMAN IMMUNOGLOBULIN G
     Dosage: 10 GM; 3-4 HOURS
     Route: 042
     Dates: start: 20130816, end: 20130816
  2. PRIVIGEN [Suspect]
     Active Substance: HUMAN IMMUNOGLOBULIN G
     Dosage: FIRST DOSE NOV2012; 25 GM
     Route: 042
  3. NASONEX [Concomitant]
     Active Substance: MOMETASONE FUROATE
  4. PRIVIGEN [Suspect]
     Active Substance: HUMAN IMMUNOGLOBULIN G
     Indication: HYPOGAMMAGLOBULINAEMIA
     Dosage: 10 GM:3-4 HOURS
     Route: 042
     Dates: start: 20130816, end: 20130816
  5. PRIVIGEN [Suspect]
     Active Substance: HUMAN IMMUNOGLOBULIN G
     Dosage: 10 GM; 3-4 HOURS
     Dates: start: 20130816, end: 20130816
  6. XANAX [Concomitant]
     Active Substance: ALPRAZOLAM
     Dosage: XR
  7. CYMBALTA [Concomitant]
     Active Substance: DULOXETINE HYDROCHLORIDE
  8. NASONEX [Concomitant]
     Active Substance: MOMETASONE FUROATE
  9. PRIVIGEN [Suspect]
     Active Substance: HUMAN IMMUNOGLOBULIN G
     Dosage: 20 GM; 3-4 HOURS
     Route: 042
     Dates: start: 20130816, end: 20130816
  10. PRIVIGEN [Suspect]
     Active Substance: HUMAN IMMUNOGLOBULIN G
     Dosage: SECOND DOSE:25 GM IN DEC-2012
     Route: 042
  11. ADVAIR HFA [Concomitant]
     Active Substance: FLUTICASONE PROPIONATE\SALMETEROL XINAFOATE
     Dosage: HFA 230/21
  12. LOSARTAN. [Concomitant]
     Active Substance: LOSARTAN
  13. LEVOTHYROXINE. [Concomitant]
     Active Substance: LEVOTHYROXINE
  14. ADVAIR HFA [Concomitant]
     Active Substance: FLUTICASONE PROPIONATE\SALMETEROL XINAFOATE

REACTIONS (9)
  - Rash maculo-papular [Unknown]
  - Rash maculo-papular [Recovered/Resolved]
  - Rash pruritic [Recovered/Resolved]
  - Rash [Unknown]
  - Skin exfoliation [Unknown]
  - Drug eruption [Unknown]
  - Rash pruritic [Unknown]
  - Pityriasis rosea [Recovered/Resolved]
  - Perivascular dermatitis [Unknown]

NARRATIVE: CASE EVENT DATE: 2013
